FAERS Safety Report 15751620 (Version 3)
Quarter: 2019Q2

REPORT INFORMATION
  Report Type: Report from Study
  Country: None (occurrence: US)
  Receive Date: 20181221
  Receipt Date: 20190603
  Transmission Date: 20190711
  Serious: Yes (Other)
  Sender: FDA-Public Use
  Company Number: US-ABBVIE-18K-163-2592721-00

PATIENT
  Age: 47 Year
  Sex: Male
  Weight: 99.88 kg

DRUGS (1)
  1. HUMIRA [Suspect]
     Active Substance: ADALIMUMAB
     Indication: PSORIASIS
     Dosage: CITRATE FREE
     Route: 058
     Dates: start: 201705

REACTIONS (3)
  - Melanocytic naevus [Recovered/Resolved]
  - Basal cell carcinoma [Recovered/Resolved]
  - Basal cell carcinoma [Recovered/Resolved]

NARRATIVE: CASE EVENT DATE: 201705
